FAERS Safety Report 18291207 (Version 1)
Quarter: 2020Q3

REPORT INFORMATION
  Report Type: Spontaneous
  Country: US (occurrence: US)
  Receive Date: 20200922
  Receipt Date: 20200922
  Transmission Date: 20201103
  Serious: No
  Sender: FDA-Public Use
  Company Number: US-SA-2020SA255562

PATIENT

DRUGS (1)
  1. DUPIXENT [Suspect]
     Active Substance: DUPILUMAB
     Dosage: 1 DF, OTHER
     Route: 058
     Dates: start: 20200917

REACTIONS (4)
  - Rash [Unknown]
  - Dry skin [Unknown]
  - Eye inflammation [Unknown]
  - Blepharitis [Unknown]

NARRATIVE: CASE EVENT DATE: 20200917
